FAERS Safety Report 21019915 (Version 1)
Quarter: 2022Q2

REPORT INFORMATION
  Report Type: Spontaneous
  Country: None (occurrence: GB)
  Receive Date: 20220628
  Receipt Date: 20220628
  Transmission Date: 20220721
  Serious: Yes (Hospitalization, Other)
  Sender: FDA-Public Use
  Company Number: GB-Breckenridge Pharmaceutical, Inc.-2130369

PATIENT
  Sex: Male

DRUGS (6)
  1. OMEPRAZOLE [Suspect]
     Active Substance: OMEPRAZOLE
     Route: 048
  2. LYRICA [Concomitant]
     Active Substance: PREGABALIN
  3. ACETAMINOPHEN [Concomitant]
     Active Substance: ACETAMINOPHEN
  4. PRADAXA [Concomitant]
     Active Substance: DABIGATRAN ETEXILATE MESYLATE
  5. RIVAROXABAN [Concomitant]
     Active Substance: RIVAROXABAN
  6. RAMIPRIL [Concomitant]
     Active Substance: RAMIPRIL

REACTIONS (12)
  - Type 2 diabetes mellitus [Unknown]
  - Eye disorder [Unknown]
  - Insomnia [Unknown]
  - Visual impairment [Unknown]
  - Memory impairment [Unknown]
  - Vertigo [Unknown]
  - Tinnitus [Unknown]
  - Headache [Unknown]
  - Dry mouth [Unknown]
  - Lip dry [Unknown]
  - Dyspnoea [Unknown]
  - Mouth ulceration [Unknown]
